FAERS Safety Report 7939104-5 (Version None)
Quarter: 2011Q4

REPORT INFORMATION
  Report Type: 
  Country: None (occurrence: None)
  Receive Date: 20111124
  Receipt Date: 20111110
  Transmission Date: 20120403
  Serious: Yes (Other)
  Sender: FDA-Public Use
  Company Number: GB-ROCHE-1011878

PATIENT
  Sex: Female

DRUGS (3)
  1. CALCIUM [Concomitant]
  2. LANSOPRAZOLE [Concomitant]
  3. HERCEPTIN [Suspect]
     Indication: BREAST CANCER

REACTIONS (4)
  - HEADACHE [None]
  - DEAFNESS TRANSITORY [None]
  - EAR DISCOMFORT [None]
  - DIZZINESS [None]
